FAERS Safety Report 17064708 (Version 2)
Quarter: 2019Q4

REPORT INFORMATION
  Report Type: Spontaneous
  Country: US (occurrence: US)
  Receive Date: 20191122
  Receipt Date: 20191125
  Transmission Date: 20200122
  Serious: No
  Sender: FDA-Public Use
  Company Number: US-PFIZER INC-2019062352

PATIENT
  Age: 59 Year
  Sex: Male

DRUGS (1)
  1. LYRICA [Suspect]
     Active Substance: PREGABALIN
     Dosage: 450 MG, DAILY1 PO(PER ORAL) Q(EVERY) AM, 2 PO QHS(EVERY NIGHT AT BEDTIME)
     Route: 048

REACTIONS (1)
  - Pain [Unknown]
